FAERS Safety Report 7074989-9 (Version None)
Quarter: 2010Q4

REPORT INFORMATION
  Report Type: 
  Country: None (occurrence: None)
  Receive Date: 20101029
  Receipt Date: 20100129
  Transmission Date: 20110411
  Serious: No
  Sender: FDA-Public Use
  Company Number: US-WYE-H13162710

PATIENT
  Age: 25 Year
  Sex: Male
  Weight: 74.91 kg

DRUGS (2)
  1. ALAVERT [Suspect]
     Indication: HYPERSENSITIVITY
     Dosage: ONE TO THREE TABLETS DAILY
     Route: 048
  2. SALBUTAMOL [Concomitant]

REACTIONS (2)
  - DRUG INEFFECTIVE [None]
  - OVERDOSE [None]
